FAERS Safety Report 25768368 (Version 1)
Quarter: 2025Q3

REPORT INFORMATION
  Report Type: Spontaneous
  Country: US (occurrence: US)
  Receive Date: 20250905
  Receipt Date: 20250905
  Transmission Date: 20251020
  Serious: No
  Sender: DOMPE FARMACEUTICI
  Company Number: US-FARMAPROD-202506-2106

PATIENT
  Age: 77 Year
  Sex: Female

DRUGS (14)
  1. OXERVATE [Suspect]
     Active Substance: CENEGERMIN-BKBJ
     Indication: Neurotrophic keratopathy
     Dates: start: 20250605
  2. SIMVASTATIN [Concomitant]
     Active Substance: SIMVASTATIN
  3. PIOGLITAZONE [Concomitant]
     Active Substance: PIOGLITAZONE
  4. MONTELUKAST SODIUM [Concomitant]
     Active Substance: MONTELUKAST SODIUM
  5. IRON [Concomitant]
     Active Substance: IRON
  6. HYDROXYUREA [Concomitant]
     Active Substance: HYDROXYUREA
  7. ARANESP [Concomitant]
     Active Substance: DARBEPOETIN ALFA
  8. VITAMIN D2 [Concomitant]
     Active Substance: ERGOCALCIFEROL
  9. ASPIRIN [Concomitant]
     Active Substance: ASPIRIN
  10. ALBUTEROL SULFATE [Concomitant]
     Active Substance: ALBUTEROL SULFATE
  11. ACETAMINOPHEN [Concomitant]
     Active Substance: ACETAMINOPHEN
  12. REFRESH CLASSIC [Concomitant]
     Active Substance: POLYVINYL ALCOHOL\POVIDONE
  13. RESTASIS [Concomitant]
     Active Substance: CYCLOSPORINE
  14. COMBIGAN [Concomitant]
     Active Substance: BRIMONIDINE TARTRATE\TIMOLOL MALEATE

REACTIONS (3)
  - Product dose omission issue [Unknown]
  - Eye pain [Unknown]
  - Eye irritation [Unknown]

NARRATIVE: CASE EVENT DATE: 20250619
